FAERS Safety Report 9405203 (Version 1)
Quarter: 2013Q3

REPORT INFORMATION
  Report Type: Spontaneous
  Country: ES (occurrence: ES)
  Receive Date: 20130717
  Receipt Date: 20130717
  Transmission Date: 20140515
  Serious: Yes (Hospitalization)
  Sender: FDA-Public Use
  Company Number: ES-BAXTER-2013BAX026944

PATIENT
  Age: 12 Year
  Sex: Male

DRUGS (1)
  1. GENOXAL GRAGEAS [Suspect]
     Indication: PRODUCT USED FOR UNKNOWN INDICATION
     Route: 048
     Dates: start: 20130515

REACTIONS (1)
  - Hepatitis [Recovering/Resolving]
